FAERS Safety Report 6873340-4 (Version None)
Quarter: 2010Q3

REPORT INFORMATION
  Report Type: 
  Country: None (occurrence: None)
  Receive Date: 20100723
  Receipt Date: 20090102
  Transmission Date: 20110219
  Serious: No
  Sender: FDA-Public Use
  Company Number: US-PFIZER INC-2009151066

PATIENT
  Sex: Female
  Weight: 47.627 kg

DRUGS (5)
  1. CHANTIX [Suspect]
     Indication: SMOKING CESSATION THERAPY
     Dosage: UNK
     Dates: start: 20081201
  2. MAXALT [Concomitant]
     Indication: MIGRAINE
     Dosage: UNK
  3. DEPAKOTE [Concomitant]
     Indication: EPILEPSY
     Dosage: UNK
  4. OXYCODONE [Concomitant]
     Indication: LIMB INJURY
     Dosage: UNK
  5. HYDROCODONE BITARTRATE [Concomitant]
     Indication: LIMB INJURY
     Dosage: UNK

REACTIONS (2)
  - NAUSEA [None]
  - VOMITING [None]
